FAERS Safety Report 8962555 (Version 1)
Quarter: 2012Q4

REPORT INFORMATION
  Report Type: Spontaneous
  Country: DE (occurrence: None)
  Receive Date: 20121206
  Receipt Date: 20121206
  Transmission Date: 20130627
  Serious: Yes (Hospitalization, Other)
  Sender: FDA-Public Use
  Company Number: GER/GER/12/0026831

PATIENT
  Age: 79 Year
  Sex: Female

DRUGS (13)
  1. VENLAFAXINE [Suspect]
     Indication: DRUG USE FOR UNKNOWN INDICATION
     Route: 048
     Dates: start: 20120619, end: 20120624
  2. VENLAFAXINE [Suspect]
     Indication: DRUG USE FOR UNKNOWN INDICATION
     Route: 048
     Dates: start: 20120625, end: 20120705
  3. VENLAFAXINE [Suspect]
     Indication: DRUG USE FOR UNKNOWN INDICATION
     Route: 048
     Dates: start: 20120706, end: 20120709
  4. VENLAFAXINE [Suspect]
     Indication: DRUG USE FOR UNKNOWN INDICATION
     Route: 048
     Dates: start: 20120710, end: 20120711
  5. VENLAFAXINE [Suspect]
     Indication: DRUG USE FOR UNKNOWN INDICATION
     Route: 048
     Dates: start: 20120712, end: 20120719
  6. VENLAFAXINE [Suspect]
     Indication: DRUG USE FOR UNKNOWN INDICATION
     Route: 048
     Dates: start: 20120720, end: 20120723
  7. VENLAFAXINE [Suspect]
     Indication: DRUG USE FOR UNKNOWN INDICATION
     Route: 048
     Dates: start: 20120724
  8. MIRTAZAPINE (MIRTAZAPINE) [Suspect]
     Indication: DRUG USE FOR UNKNOWN INDICATION
     Route: 048
     Dates: start: 20120515, end: 20120609
  9. MIRTAZAPINE (MIRTAZAPINE) [Suspect]
     Indication: DRUG USE FOR UNKNOWN INDICATION
     Route: 048
     Dates: start: 20120610, end: 20120618
  10. HCT HEXAL [Suspect]
     Indication: DRUG USE FOR UNKNOWN INDICATION
     Route: 048
     Dates: start: 20120727
  11. AGOMELATINE [Suspect]
     Indication: DRUG USE FOR UNKNOWN INDICATION
  12. ASS (ACETYLSALICYLIC ACID) [Concomitant]
  13. BISOPROLOL [Concomitant]

REACTIONS (5)
  - Hyponatraemia [None]
  - Hypokalaemia [None]
  - Hypochloraemia [None]
  - Major depression [None]
  - Delusion [None]
